FAERS Safety Report 11196088 (Version 1)
Quarter: 2015Q2

REPORT INFORMATION
  Report Type: Spontaneous
  Country: US (occurrence: US)
  Receive Date: 20150617
  Receipt Date: 20150617
  Transmission Date: 20150821
  Serious: No
  Sender: FDA-Public Use
  Company Number: US-ELI_LILLY_AND_COMPANY-US201506006059

PATIENT
  Age: 58 Year
  Sex: Female

DRUGS (5)
  1. CLARITIN [Concomitant]
     Active Substance: LORATADINE
     Indication: IMMUNISATION
     Dosage: UNK, UNKNOWN
     Route: 065
  2. ULTRASE                            /00150201/ [Concomitant]
     Indication: PRODUCT USED FOR UNKNOWN INDICATION
     Dosage: UNK, UNKNOWN
     Route: 065
  3. HUMATROPE [Suspect]
     Active Substance: SOMATROPIN
     Indication: GROWTH HORMONE DEFICIENCY
     Dosage: 0.27 MG, QD
     Route: 065
     Dates: start: 201301
  4. HUMATROPE [Suspect]
     Active Substance: SOMATROPIN
     Indication: HYPOTHALAMO-PITUITARY DISORDER
  5. RALOXIFENE [Concomitant]
     Active Substance: RALOXIFENE
     Indication: PRODUCT USED FOR UNKNOWN INDICATION
     Dosage: UNK, UNKNOWN
     Route: 065

REACTIONS (9)
  - Finger deformity [Unknown]
  - Arthritis [Unknown]
  - Drug dose omission [Unknown]
  - Fatigue [Unknown]
  - Drug withdrawal syndrome [Unknown]
  - Malaise [Unknown]
  - Pneumonia [Recovering/Resolving]
  - Sinusitis [Recovering/Resolving]
  - Asthenia [Unknown]

NARRATIVE: CASE EVENT DATE: 201505
